FAERS Safety Report 4321809-9 (Version None)
Quarter: 2004Q1

REPORT INFORMATION
  Report Type: 
  Country: None (occurrence: None)
  Receive Date: 20040322
  Receipt Date: 20040120
  Transmission Date: 20041129
  Serious: No
  Sender: FDA-Public Use
  Company Number: US-BRISTOL-MYERS SQUIBB COMPANY-12486031

PATIENT
  Age: 30 Year
  Sex: Female

DRUGS (4)
  1. MONISTAT [Suspect]
     Indication: VAGINAL MYCOSIS
     Route: 067
     Dates: start: 20040119, end: 20040119
  2. KLONOPIN [Concomitant]
  3. ZOLOFT [Concomitant]
  4. AMOXICILLIN [Concomitant]

REACTIONS (4)
  - GENITAL PRURITUS FEMALE [None]
  - VAGINAL BURNING SENSATION [None]
  - VAGINAL DISCHARGE [None]
  - VULVAL OEDEMA [None]
